FAERS Safety Report 14051171 (Version 1)
Quarter: 2017Q4

REPORT INFORMATION
  Report Type: Spontaneous
  Country: US (occurrence: US)
  Receive Date: 20171005
  Receipt Date: 20171005
  Transmission Date: 20180321
  Serious: No
  Sender: FDA-Public Use
  Company Number: US-SEATTLE GENETICS-2016SGN01787

PATIENT
  Age: 53 Year
  Sex: Female

DRUGS (1)
  1. ADCETRIS [Suspect]
     Active Substance: BRENTUXIMAB VEDOTIN
     Indication: HODGKIN^S DISEASE
     Dosage: UNK
     Route: 065
     Dates: start: 2016, end: 20161102

REACTIONS (4)
  - Respiratory rate decreased [Unknown]
  - Paraesthesia [Unknown]
  - Memory impairment [Unknown]
  - Lethargy [Unknown]
